FAERS Safety Report 16049840 (Version 1)
Quarter: 2019Q1

REPORT INFORMATION
  Report Type: Spontaneous
  Country: US (occurrence: US)
  Receive Date: 20190307
  Receipt Date: 20190307
  Transmission Date: 20190418
  Serious: Yes (Other)
  Sender: FDA-Public Use
  Company Number: US-ZYDUS-034522

PATIENT
  Age: 8 Day
  Sex: Male

DRUGS (3)
  1. DOXYCYCLINE. [Suspect]
     Active Substance: DOXYCYCLINE
     Indication: SCLEROTHERAPY
     Route: 065
  2. IOHEXOL [Concomitant]
     Active Substance: IOHEXOL
     Indication: SCLEROTHERAPY
     Dosage: IOHEXOL ALSO CONTAINS 1.21 MG/ML TROMETHAMINE AND 0.1 MG/ML EDETATE CALCIUM DISODIUM
     Route: 065
  3. DOXYCYCLINE. [Suspect]
     Active Substance: DOXYCYCLINE
     Indication: SCLEROTHERAPY
     Route: 065

REACTIONS (5)
  - Haemolytic anaemia [Unknown]
  - Hypoglycaemia neonatal [Unknown]
  - Metabolic acidosis [Unknown]
  - Methaemoglobinaemia [Recovered/Resolved]
  - Chromaturia [Unknown]
